FAERS Safety Report 5264079-X (Version None)
Quarter: 2007Q1

REPORT INFORMATION
  Report Type: 
  Country: None (occurrence: None)
  Receive Date: 20070313
  Receipt Date: 20070301
  Transmission Date: 20070707
  Serious: Yes (Death)
  Sender: FDA-Public Use
  Company Number: JP-PFIZER INC-2007007165

PATIENT
  Sex: Male

DRUGS (10)
  1. LIPITOR [Suspect]
     Dosage: DAILY DOSE:20MG
     Route: 048
  2. MUCOSTA [Suspect]
     Dosage: DAILY DOSE:300MG
     Route: 048
  3. CALTAN [Concomitant]
     Dosage: DAILY DOSE:1.5MG
     Route: 048
  4. TAKEPRON [Concomitant]
     Dosage: DAILY DOSE:15MG
     Route: 048
  5. WARFARIN SODIUM [Concomitant]
     Dosage: DAILY DOSE:3MG
     Route: 048
  6. ADALAT [Concomitant]
     Dosage: DAILY DOSE:40MG
     Route: 048
  7. ASTOMIN [Concomitant]
     Dosage: DAILY DOSE:20MG
     Route: 048
     Dates: start: 20070108, end: 20070112
  8. MUCODYNE [Concomitant]
     Dosage: DAILY DOSE:500MG
     Route: 048
     Dates: start: 20070108, end: 20070112
  9. FRANDOL [Concomitant]
     Dosage: DAILY DOSE:40MG
  10. PURSENNID [Concomitant]
     Dosage: DAILY DOSE:24MG
     Route: 048

REACTIONS (2)
  - AGRANULOCYTOSIS [None]
  - HISTIOCYTOSIS HAEMATOPHAGIC [None]
